FAERS Safety Report 15749098 (Version 1)
Quarter: 2018Q4

REPORT INFORMATION
  Report Type: Spontaneous
  Country: US (occurrence: US)
  Receive Date: 20181219
  Receipt Date: 20181219
  Transmission Date: 20190206
  Serious: No
  Sender: FDA-Public Use
  Company Number: None

PATIENT
  Age: 17 Year
  Sex: Female
  Weight: 69.85 kg

DRUGS (1)
  1. AIMOVIG 70MG/ML SQ [Suspect]
     Active Substance: ERENUMAB
     Indication: MIGRAINE
     Route: 058
     Dates: start: 20181004

REACTIONS (2)
  - Dizziness [None]
  - Syncope [None]
